FAERS Safety Report 5811250-1 (Version None)
Quarter: 2008Q3

REPORT INFORMATION
  Report Type: 
  Country: None (occurrence: None)
  Receive Date: 20080710
  Receipt Date: 20080625
  Transmission Date: 20090109
  Serious: Yes (Other)
  Sender: FDA-Public Use
  Company Number: 100#03#2008-03317

PATIENT
  Age: 61 Year
  Sex: Female

DRUGS (4)
  1. TRAMADOL HCL [Suspect]
     Indication: ACCIDENTAL EXPOSURE
     Dosage: 100 MG ORAL
     Route: 048
     Dates: start: 20080520, end: 20080520
  2. NEURONTIN [Suspect]
     Indication: ACCIDENTAL EXPOSURE
     Dosage: 1500 MG ORAL
     Route: 048
     Dates: start: 20080520, end: 20080520
  3. ACETYLSALICYLIC ACID SRT [Concomitant]
  4. METFORMIN HCL [Concomitant]

REACTIONS (11)
  - ACCIDENTAL EXPOSURE [None]
  - CONFUSIONAL STATE [None]
  - DIZZINESS [None]
  - GAIT DISTURBANCE [None]
  - HALLUCINATION [None]
  - MALAISE [None]
  - NAUSEA [None]
  - PHOTOPSIA [None]
  - SOMNOLENCE [None]
  - VOMITING [None]
  - WRONG DRUG ADMINISTERED [None]
